FAERS Safety Report 5287588-6 (Version None)
Quarter: 2007Q1

REPORT INFORMATION
  Report Type: 
  Country: None (occurrence: None)
  Receive Date: 20070126
  Receipt Date: 20050809
  Transmission Date: 20070707
  Serious: No
  Sender: FDA-Public Use
  Company Number: 2006CT001111

PATIENT
  Age: 60 Year
  Sex: Female
  Weight: 42.6 kg

DRUGS (9)
  1. VENTAVIS [Suspect]
     Indication: PULMONARY HYPERTENSION
     Dosage: SEE IMAGE
     Route: 055
     Dates: start: 20050616, end: 20050616
  2. VENTAVIS [Suspect]
     Indication: PULMONARY HYPERTENSION
     Dosage: SEE IMAGE
     Route: 055
     Dates: start: 20050616, end: 20050805
  3. ASPIRIN [Concomitant]
  4. PANTOPRAZOLE [Concomitant]
  5. LASIX [Concomitant]
  6. K-DUR 10 [Concomitant]
  7. METOPROLOL SUCCINATE [Concomitant]
  8. LEVOXYL [Concomitant]
  9. LIDODERM [Concomitant]

REACTIONS (3)
  - DIZZINESS [None]
  - OEDEMA PERIPHERAL [None]
  - SOMNOLENCE [None]
